FAERS Safety Report 5771927-3 (Version None)
Quarter: 2008Q2

REPORT INFORMATION
  Report Type: 
  Country: None (occurrence: None)
  Receive Date: 20080612
  Receipt Date: 20080612
  Transmission Date: 20081010
  Serious: Yes (Hospitalization)
  Sender: FDA-Public Use
  Company Number: None

PATIENT
  Age: 60 Year
  Sex: Male
  Weight: 76.6579 kg

DRUGS (7)
  1. GEMCITABINE [Suspect]
     Indication: HEAD AND NECK CANCER
     Dosage: 1125 MG/M2 EVERY 14 DAYS IV
     Route: 042
     Dates: start: 20080129, end: 20080513
  2. PEMETREXED [Suspect]
     Indication: HEAD AND NECK CANCER
     Dosage: 375 MG/M2 EVERY 14 DAYS IV
     Route: 042
     Dates: start: 20080129, end: 20080513
  3. GABAPENTIN [Concomitant]
  4. MINOCYCLINE HCL [Concomitant]
  5. LEXAPRO [Concomitant]
  6. SENNA [Concomitant]
  7. LIPITOR [Concomitant]

REACTIONS (3)
  - BLOOD CREATINE INCREASED [None]
  - HAEMOGLOBIN DECREASED [None]
  - WHITE BLOOD CELL COUNT DECREASED [None]
